FAERS Safety Report 19427301 (Version 3)
Quarter: 2021Q3

REPORT INFORMATION
  Report Type: Spontaneous
  Country: ES (occurrence: ES)
  Receive Date: 20210617
  Receipt Date: 20210831
  Transmission Date: 20211014
  Serious: Yes (Other)
  Sender: FDA-Public Use
  Company Number: ES-TEVA-2019-ES-1158699

PATIENT
  Age: 34 Year
  Sex: Female

DRUGS (1)
  1. COPAXONE [Suspect]
     Active Substance: GLATIRAMER ACETATE
     Indication: MULTIPLE SCLEROSIS
     Route: 058
     Dates: start: 20151025

REACTIONS (19)
  - Arthralgia [Unknown]
  - Normal newborn [Unknown]
  - Maternal exposure during pregnancy [Unknown]
  - Peripheral swelling [Recovered/Resolved]
  - Prolonged labour [Unknown]
  - Umbilical hernia [Unknown]
  - Vaginal discharge [Unknown]
  - Anxiety [Unknown]
  - Back pain [Unknown]
  - Flatulence [Unknown]
  - Inadequate analgesia [Unknown]
  - Complication of delivery [Unknown]
  - Post procedural discomfort [Unknown]
  - Maternal exposure during breast feeding [Unknown]
  - Hypoaesthesia [Unknown]
  - Vomiting [Recovering/Resolving]
  - Pain [Unknown]
  - Procedural pain [Unknown]
  - Breast pain [Recovering/Resolving]

NARRATIVE: CASE EVENT DATE: 20191114
